FAERS Safety Report 8577594-8 (Version None)
Quarter: 2012Q3

REPORT INFORMATION
  Report Type: 
  Country: None (occurrence: None)
  Receive Date: 20120807
  Receipt Date: 20120803
  Transmission Date: 20120928
  Serious: Yes (Life-Threatening, Hospitalization)
  Sender: FDA-Public Use
  Company Number: US-AMGEN-US282405

PATIENT
  Age: 83 Year
  Sex: Male
  Weight: 97.2 kg

DRUGS (15)
  1. ESZOPICLONE [Concomitant]
     Dosage: UNK UNK, UNK
     Route: 065
  2. FUROSEMIDE [Concomitant]
     Dosage: UNK UNK, UNK
     Route: 065
  3. NEPHRO-VITE [Concomitant]
     Dosage: 1 MG, QD
     Route: 048
     Dates: start: 20070110
  4. ACETYLSALICYLIC ACID [Concomitant]
     Dosage: 81 MG, QD
     Route: 048
     Dates: start: 20070110
  5. ISOSORBIDE MONONITRATE [Concomitant]
     Dosage: UNK UNK, UNK
     Route: 065
  6. DARBEPOETIN ALFA [Concomitant]
     Indication: RENAL FAILURE CHRONIC
     Dosage: 60 A?G, QWK
     Route: 058
  7. INSULIN LISPRO [Concomitant]
     Dosage: UNK UNK, UNK
     Route: 065
  8. DOCUSATE SODIUM [Concomitant]
     Dosage: 100 MG, BID
     Route: 048
  9. LANTUS [Concomitant]
     Dosage: 28 IU, QD
     Route: 058
     Dates: start: 20070115
  10. AMIODARONE HCL [Concomitant]
     Dosage: 100 MG, QD
     Route: 048
     Dates: start: 20070110
  11. SIMVASTATIN [Concomitant]
     Dosage: UNK UNK, UNK
     Route: 065
  12. CARVEDILOL [Concomitant]
     Dosage: 25 MG, QD
     Route: 048
     Dates: start: 20070119
  13. CINACALCET HYDROCHLORIDE [Suspect]
     Indication: HYPERPARATHYROIDISM SECONDARY
     Dosage: UNK UNK, QD
     Route: 048
     Dates: start: 20071108
  14. ALLOPURINOL [Concomitant]
     Dosage: 100 MG, QD
     Route: 048
     Dates: start: 20070110
  15. CLOPIDOGREL BISULFATE [Concomitant]
     Dosage: UNK UNK, UNK
     Route: 065

REACTIONS (3)
  - HYPOCALCAEMIA [None]
  - VENTRICULAR TACHYCARDIA [None]
  - CARDIAC ARREST [None]
